FAERS Safety Report 4570243-5 (Version None)
Quarter: 2005Q1

REPORT INFORMATION
  Report Type: 
  Country: None (occurrence: None)
  Receive Date: 20050127
  Receipt Date: 20050127
  Transmission Date: 20050727
  Serious: No
  Sender: FDA-Public Use
  Company Number: None

PATIENT
  Age: 58 Year
  Sex: Male
  Weight: 95.2554 kg

DRUGS (1)
  1. PRAVACHOL [Suspect]
     Indication: DYSLIPIDAEMIA
     Dosage: 1 TABLET    DAILY   ORAL
     Route: 048
     Dates: start: 20030401, end: 20030820

REACTIONS (7)
  - ABDOMINAL DISCOMFORT [None]
  - FATIGUE [None]
  - HERPES VIRUS INFECTION [None]
  - IMMUNE SYSTEM DISORDER [None]
  - MUSCULAR WEAKNESS [None]
  - NIGHT SWEATS [None]
  - RASH MACULO-PAPULAR [None]
